FAERS Safety Report 11315968 (Version 3)
Quarter: 2015Q3

REPORT INFORMATION
  Report Type: Report from Study
  Country: US (occurrence: US)
  Receive Date: 20150728
  Receipt Date: 20150819
  Transmission Date: 20151125
  Serious: Yes (Hospitalization)
  Sender: FDA-Public Use
  Company Number: US-EISAI MEDICAL RESEARCH-EC-2015-008079

PATIENT
  Age: 82 Year
  Sex: Male
  Weight: 81.6 kg

DRUGS (23)
  1. LENVIMA [Suspect]
     Active Substance: LENVATINIB
     Indication: THYROID CANCER
     Route: 048
     Dates: start: 20150624, end: 20150717
  2. FINASTERIDE. [Concomitant]
     Active Substance: FINASTERIDE
  3. LEVOTHYROXINE SODIUM. [Concomitant]
     Active Substance: LEVOTHYROXINE SODIUM
  4. COMPAZINE [Concomitant]
     Active Substance: PROCHLORPERAZINE MALEATE
  5. PANTOPRAZOLE [Concomitant]
     Active Substance: PANTOPRAZOLE SODIUM
  6. IMODIUM [Concomitant]
     Active Substance: LOPERAMIDE HYDROCHLORIDE
  7. ISOSORBIDE MONONITRATE EXTENDED RELEASE [Concomitant]
     Active Substance: ISOSORBIDE MONONITRATE
  8. LACTULOSE. [Concomitant]
     Active Substance: LACTULOSE
  9. RANOLAZINE [Concomitant]
     Active Substance: RANOLAZINE
  10. IBUPROFEN. [Concomitant]
     Active Substance: IBUPROFEN
  11. LENVIMA [Suspect]
     Active Substance: LENVATINIB
     Route: 048
     Dates: start: 20150729
  12. ASPIRIN. [Concomitant]
     Active Substance: ASPIRIN
  13. MAGNESIUM OXIDE. [Concomitant]
     Active Substance: MAGNESIUM OXIDE
  14. PROPRANOLOL HYDROCHLORIDE. [Concomitant]
     Active Substance: PROPRANOLOL HYDROCHLORIDE
  15. LAXATIVE TAB [Concomitant]
  16. ACETAMINOPHEN WITH CODINE [Concomitant]
  17. VITAMIN D3 [Concomitant]
     Active Substance: CHOLECALCIFEROL
  18. LANSOPRAZOLE. [Concomitant]
     Active Substance: LANSOPRAZOLE
  19. ATORVASTATIN [Concomitant]
     Active Substance: ATORVASTATIN
  20. LOSARTAN POTASSIUM. [Concomitant]
     Active Substance: LOSARTAN POTASSIUM
  21. NAPROXEN SODIUM. [Concomitant]
     Active Substance: NAPROXEN SODIUM
  22. LENVIMA [Suspect]
     Active Substance: LENVATINIB
     Route: 048
     Dates: start: 201507, end: 20150721
  23. NITROGLYCERIN. [Concomitant]
     Active Substance: NITROGLYCERIN

REACTIONS (16)
  - Diarrhoea [Unknown]
  - Asthenia [Unknown]
  - Dizziness [Recovered/Resolved]
  - Feeling abnormal [Unknown]
  - Blood pressure increased [Unknown]
  - Peripheral swelling [Unknown]
  - Dysphonia [Unknown]
  - Constipation [Unknown]
  - Cough [Unknown]
  - Fatigue [Unknown]
  - Weight decreased [Unknown]
  - Lymphadenopathy [Unknown]
  - Ageusia [Recovering/Resolving]
  - Decreased appetite [Unknown]
  - Dry mouth [Recovering/Resolving]
  - Nausea [Unknown]

NARRATIVE: CASE EVENT DATE: 2015
